FAERS Safety Report 22032992 (Version 1)
Quarter: 2023Q1

REPORT INFORMATION
  Report Type: Spontaneous
  Country: US (occurrence: None)
  Receive Date: 20230222
  Receipt Date: 20230222
  Transmission Date: 20230418
  Serious: Yes (Other)
  Sender: FDA-Public Use
  Company Number: None

PATIENT
  Age: 61 Year
  Sex: Female
  Weight: 63 kg

DRUGS (7)
  1. COLGATE TOTAL SF CLEAN MINT [Suspect]
     Active Substance: STANNOUS FLUORIDE
     Indication: Dental care
     Route: 048
     Dates: start: 20221102, end: 20230219
  2. RIZATRIPTAN [Concomitant]
     Active Substance: RIZATRIPTAN
  3. SERTRALINE [Concomitant]
     Active Substance: SERTRALINE HYDROCHLORIDE
  4. FISH OIL [Concomitant]
     Active Substance: FISH OIL
  5. VITAMIN D NOS [Concomitant]
     Active Substance: VITAMIN D NOS
  6. VITAMIN C [Concomitant]
     Active Substance: ASCORBIC ACID
  7. TYLENOL [Concomitant]
     Active Substance: ACETAMINOPHEN

REACTIONS (5)
  - Oral discomfort [None]
  - Oral pain [None]
  - Dysgeusia [None]
  - Tongue blistering [None]
  - Dyspepsia [None]

NARRATIVE: CASE EVENT DATE: 20230219
